FAERS Safety Report 15918692 (Version 1)
Quarter: 2019Q1

REPORT INFORMATION
  Report Type: Spontaneous
  Country: US (occurrence: US)
  Receive Date: 20190205
  Receipt Date: 20190205
  Transmission Date: 20190417
  Serious: Yes (Other)
  Sender: FDA-Public Use
  Company Number: US-TEVA-2019-US-1006327

PATIENT
  Age: 57 Year
  Sex: Female

DRUGS (1)
  1. AJOVY [Suspect]
     Active Substance: FREMANEZUMAB-VFRM
     Dosage: 7.5 MILLIGRAM DAILY;
     Route: 058
     Dates: start: 20181101

REACTIONS (7)
  - Pruritus [Unknown]
  - Dry mouth [Unknown]
  - Swelling face [Unknown]
  - Rash [Unknown]
  - Pruritus [Unknown]
  - Abdominal distension [Unknown]
  - Rash generalised [Unknown]

NARRATIVE: CASE EVENT DATE: 20190104
